FAERS Safety Report 15076219 (Version 1)
Quarter: 2018Q2

REPORT INFORMATION
  Report Type: Spontaneous
  Country: US (occurrence: US)
  Receive Date: 20180627
  Receipt Date: 20180627
  Transmission Date: 20180711
  Serious: No
  Sender: FDA-Public Use
  Company Number: US-SHIRE-US201821726

PATIENT
  Age: 82 Year
  Sex: Female
  Weight: 64.4 kg

DRUGS (1)
  1. XIIDRA [Suspect]
     Active Substance: LIFITEGRAST
     Indication: DRY EYE
     Dosage: 1 GTT, 2X/DAY:BID (5% SOLUTION)
     Route: 047
     Dates: start: 20180524, end: 20180525

REACTIONS (6)
  - Drug effect incomplete [Recovered/Resolved]
  - Instillation site burn [Not Recovered/Not Resolved]
  - Sinus pain [Not Recovered/Not Resolved]
  - Product container issue [Unknown]
  - Condition aggravated [Not Recovered/Not Resolved]
  - Instillation site pain [Not Recovered/Not Resolved]

NARRATIVE: CASE EVENT DATE: 20180524
